FAERS Safety Report 5583928-9 (Version None)
Quarter: 2008Q1

REPORT INFORMATION
  Report Type: 
  Country: None (occurrence: None)
  Receive Date: 20080103
  Receipt Date: 20080103
  Transmission Date: 20080703
  Serious: No
  Sender: FDA-Public Use
  Company Number: None

PATIENT
  Sex: Female
  Weight: 53.41 kg

DRUGS (5)
  1. TAXOL [Suspect]
     Dosage: 271 MG
     Dates: end: 20071207
  2. CARBOPLATIN [Suspect]
     Dosage: 600 MG
     Dates: end: 20071207
  3. AFEDITAB [Concomitant]
  4. BENAZEPRIL HYDROCHLORIDE [Concomitant]
  5. HYDROCLOROTHYAZIDE [Concomitant]

REACTIONS (6)
  - ABASIA [None]
  - DYSSTASIA [None]
  - HYPOAESTHESIA [None]
  - HYPOREFLEXIA [None]
  - PAIN [None]
  - PARAESTHESIA [None]
